FAERS Safety Report 19584811 (Version 2)
Quarter: 2021Q3

REPORT INFORMATION
  Report Type: Spontaneous
  Country: GB (occurrence: GB)
  Receive Date: 20210720
  Receipt Date: 20210810
  Transmission Date: 20211014
  Serious: Yes (Other)
  Sender: FDA-Public Use
  Company Number: GB-MYLANLABS-2020M1065851

PATIENT
  Age: 50 Year
  Sex: Male

DRUGS (3)
  1. CLOZARIL [Suspect]
     Active Substance: CLOZAPINE
     Dosage: 400 MILLIGRAM, QD
  2. VALPROATE [Concomitant]
     Active Substance: VALPROIC ACID
     Dosage: UNK
  3. CLOZARIL [Suspect]
     Active Substance: CLOZAPINE
     Indication: SCHIZOPHRENIA
     Dosage: UNK
     Route: 048
     Dates: start: 20010701

REACTIONS (7)
  - Malaise [Unknown]
  - Anaemia [Unknown]
  - Infection [Unknown]
  - White blood cell count increased [Unknown]
  - Differential white blood cell count abnormal [Not Recovered/Not Resolved]
  - Antipsychotic drug level increased [Unknown]
  - Neutrophil count increased [Unknown]

NARRATIVE: CASE EVENT DATE: 20200715
